FAERS Safety Report 19376178 (Version 1)
Quarter: 2021Q2

REPORT INFORMATION
  Report Type: Spontaneous
  Country: JP (occurrence: JP)
  Receive Date: 20210604
  Receipt Date: 20210604
  Transmission Date: 20210717
  Serious: Yes (Other)
  Sender: FDA-Public Use
  Company Number: JP-JNJFOC-20210607867

PATIENT
  Age: 58 Year
  Sex: Male
  Weight: 66.5 kg

DRUGS (7)
  1. SIRTURO [Suspect]
     Active Substance: BEDAQUILINE FUMARATE
     Indication: PRODUCT USED FOR UNKNOWN INDICATION
     Route: 048
     Dates: start: 20201019, end: 20210309
  2. ETHIONAMIDE [Suspect]
     Active Substance: ETHIONAMIDE
     Indication: PRODUCT USED FOR UNKNOWN INDICATION
     Dosage: DOSE UNKNOWN
     Route: 048
     Dates: end: 20210309
  3. DELAMANID [Concomitant]
     Active Substance: DELAMANID
     Dosage: DOSE UNKNOWN
     Route: 065
     Dates: start: 20210407
  4. CYCLOSERINE. [Concomitant]
     Active Substance: CYCLOSERINE
     Dosage: DOSE UNKNOWN
     Route: 048
  5. SIRTURO [Suspect]
     Active Substance: BEDAQUILINE FUMARATE
     Indication: PRODUCT USED FOR UNKNOWN INDICATION
     Dosage: DOSE UNKNOWN
     Route: 048
     Dates: start: 20210421
  6. LEVOFLOXACIN HEMIHYDRATE [Concomitant]
     Active Substance: LEVOFLOXACIN
     Dosage: DOSE UNKNOWN
     Route: 065
  7. DELAMANID [Concomitant]
     Active Substance: DELAMANID
     Dosage: DOSE UNKNOWN
     Route: 065

REACTIONS (2)
  - Decreased appetite [Unknown]
  - Hepatic function abnormal [Unknown]

NARRATIVE: CASE EVENT DATE: 20201112
